FAERS Safety Report 16279789 (Version 4)
Quarter: 2022Q1

REPORT INFORMATION
  Report Type: Spontaneous
  Country: US (occurrence: None)
  Receive Date: 20190507
  Receipt Date: 20220308
  Transmission Date: 20220423
  Serious: Yes (Other)
  Sender: FDA-Public Use
  Company Number: 2019SE61427

PATIENT
  Age: 20980 Day
  Sex: Male
  Weight: 81.6 kg

DRUGS (54)
  1. PRILOSEC [Suspect]
     Active Substance: OMEPRAZOLE MAGNESIUM
     Indication: Gastrooesophageal reflux disease
     Route: 048
     Dates: start: 199805, end: 201609
  2. PRILOSEC [Suspect]
     Active Substance: OMEPRAZOLE MAGNESIUM
     Indication: Gastrooesophageal reflux disease
     Route: 048
     Dates: start: 19980512, end: 19990612
  3. PRILOSEC [Suspect]
     Active Substance: OMEPRAZOLE MAGNESIUM
     Indication: Gastrooesophageal reflux disease
     Dosage: GENERIC
     Route: 065
     Dates: start: 20140513, end: 20160913
  4. PRILOSEC [Suspect]
     Active Substance: OMEPRAZOLE MAGNESIUM
     Indication: Gastrooesophageal reflux disease
     Route: 048
     Dates: start: 20061116, end: 20070820
  5. PRILOSEC OTC [Suspect]
     Active Substance: OMEPRAZOLE MAGNESIUM
     Indication: Gastrooesophageal reflux disease
     Route: 048
     Dates: start: 199805, end: 201609
  6. PRILOSEC OTC [Suspect]
     Active Substance: OMEPRAZOLE MAGNESIUM
     Indication: Gastrooesophageal reflux disease
     Route: 048
     Dates: start: 20050829, end: 20160913
  7. PROTONIX [Suspect]
     Active Substance: PANTOPRAZOLE SODIUM
     Indication: Gastrooesophageal reflux disease
     Route: 065
     Dates: start: 20050802, end: 20061116
  8. OXYCODONE [Concomitant]
     Active Substance: OXYCODONE
     Indication: Pain
     Dates: start: 20140415, end: 20160318
  9. CYCLOBENZAPRINE [Concomitant]
     Active Substance: CYCLOBENZAPRINE
     Indication: Muscle spasms
     Dates: start: 20141021, end: 20160526
  10. METOPROLOL [Concomitant]
     Active Substance: METOPROLOL
     Indication: Hypertension
     Dates: start: 20120613, end: 20160627
  11. LISINOPRIL [Concomitant]
     Active Substance: LISINOPRIL
     Indication: Hypertension
     Dates: start: 20120606, end: 20151203
  12. IBUPROFEN [Concomitant]
     Active Substance: IBUPROFEN
     Indication: Pain
  13. HUMALOG [Concomitant]
     Active Substance: INSULIN LISPRO
  14. GLUCOTROL [Concomitant]
     Active Substance: GLIPIZIDE
  15. FISH OIL [Concomitant]
     Active Substance: FISH OIL
  16. ASPIRIN [Concomitant]
     Active Substance: ASPIRIN
  17. VALIUM [Concomitant]
     Active Substance: DIAZEPAM
  18. TRICOR [Concomitant]
     Active Substance: FENOFIBRATE
  19. ZOCOR [Concomitant]
     Active Substance: SIMVASTATIN
  20. NAPROXEN [Concomitant]
     Active Substance: NAPROXEN
  21. CRESTOR [Concomitant]
     Active Substance: ROSUVASTATIN CALCIUM
  22. TOPROL XL [Concomitant]
     Active Substance: METOPROLOL SUCCINATE
  23. IMDUR [Concomitant]
     Active Substance: ISOSORBIDE MONONITRATE
     Dates: start: 20141021, end: 20160526
  24. NITROSTAT [Concomitant]
     Active Substance: NITROGLYCERIN
     Dates: start: 20141021, end: 20160526
  25. LORAZEPAM [Concomitant]
     Active Substance: LORAZEPAM
     Dates: start: 20141021, end: 20160526
  26. METOPROL TAR [Concomitant]
     Dates: start: 20141021, end: 20160526
  27. DIAZEPAM [Concomitant]
     Active Substance: DIAZEPAM
  28. ACETAMINOPHEN\HYDROCODONE BITARTRATE [Concomitant]
     Active Substance: ACETAMINOPHEN\HYDROCODONE BITARTRATE
  29. LIPITOR [Concomitant]
     Active Substance: ATORVASTATIN CALCIUM
  30. VICODIN [Concomitant]
     Active Substance: ACETAMINOPHEN\HYDROCODONE BITARTRATE
  31. ATENOLOL [Concomitant]
     Active Substance: ATENOLOL
  32. FENOFIBRATE [Concomitant]
     Active Substance: FENOFIBRATE
  33. CYCLOBENZAPRINE [Concomitant]
     Active Substance: CYCLOBENZAPRINE
  34. SIMVASTATIN [Concomitant]
     Active Substance: SIMVASTATIN
  35. AMITRIPTYLINE [Concomitant]
     Active Substance: AMITRIPTYLINE
  36. OMEGA-3 FATTY ACIDS [Concomitant]
     Active Substance: OMEGA-3 FATTY ACIDS
  37. HYDROMORPHONE [Concomitant]
     Active Substance: HYDROMORPHONE
  38. GLIPIZIDE [Concomitant]
     Active Substance: GLIPIZIDE
  39. TIZANIDINE [Concomitant]
     Active Substance: TIZANIDINE
  40. CARDIZEM [Concomitant]
     Active Substance: DILTIAZEM HYDROCHLORIDE
  41. COD LIVER OIL [Concomitant]
     Active Substance: COD LIVER OIL
  42. FLAXSEED [Concomitant]
     Active Substance: FLAX SEED
  43. CYCLOBENZAPRINE [Concomitant]
     Active Substance: CYCLOBENZAPRINE
  44. DILTIAZEM [Concomitant]
     Active Substance: DILTIAZEM
  45. DOXYCYCLINE HYCLATE [Concomitant]
     Active Substance: DOXYCYCLINE HYCLATE
  46. CEPHALEXIN [Concomitant]
     Active Substance: CEPHALEXIN
  47. VITAMIN D2 [Concomitant]
     Active Substance: ERGOCALCIFEROL
  48. MUPIROCIN [Concomitant]
     Active Substance: MUPIROCIN
  49. SULFAMETHOXAZOLE [Concomitant]
     Active Substance: SULFAMETHOXAZOLE
  50. ACETAMINOPHEN\HYDROCODONE BITARTRATE [Concomitant]
     Active Substance: ACETAMINOPHEN\HYDROCODONE BITARTRATE
  51. HYDROXYZINE [Concomitant]
     Active Substance: HYDROXYZINE HYDROCHLORIDE
  52. LEVEMIR [Concomitant]
     Active Substance: INSULIN DETEMIR
  53. HYDROMORPHONE [Concomitant]
     Active Substance: HYDROMORPHONE
  54. ZANAFLEX [Concomitant]
     Active Substance: TIZANIDINE HYDROCHLORIDE

REACTIONS (5)
  - Acute kidney injury [Unknown]
  - Chronic kidney disease [Not Recovered/Not Resolved]
  - End stage renal disease [Unknown]
  - Hypertension [Unknown]
  - Renal failure [Unknown]

NARRATIVE: CASE EVENT DATE: 20140602
